FAERS Safety Report 25185221 (Version 1)
Quarter: 2025Q2

REPORT INFORMATION
  Report Type: Spontaneous
  Country: US (occurrence: None)
  Receive Date: 20250410
  Receipt Date: 20250410
  Transmission Date: 20250717
  Serious: Yes (Other)
  Sender: FDA-CTU
  Company Number: None

PATIENT
  Age: 39 Year
  Sex: Male
  Weight: 88.2 kg

DRUGS (3)
  1. CYANOCOBALAMIN\GLYCINE\TIRZEPATIDE [Suspect]
     Active Substance: CYANOCOBALAMIN\GLYCINE\TIRZEPATIDE
     Indication: Weight control
     Dates: start: 20250324, end: 20250407
  2. BLOOD PRESSURE MEDS [Concomitant]
  3. GERD MED [Concomitant]

REACTIONS (4)
  - Flatulence [None]
  - Abdominal pain upper [None]
  - Abdominal distension [None]
  - Intestinal obstruction [None]

NARRATIVE: CASE EVENT DATE: 20250407
